FAERS Safety Report 6920159-1 (Version None)
Quarter: 2010Q3

REPORT INFORMATION
  Report Type: 
  Country: None (occurrence: None)
  Receive Date: 20100811
  Receipt Date: 20100805
  Transmission Date: 20110219
  Serious: Yes (Death, Hospitalization)
  Sender: FDA-Public Use
  Company Number: JP-ELI_LILLY_AND_COMPANY-JP201006006702

PATIENT
  Sex: Male
  Weight: 65 kg

DRUGS (19)
  1. ALIMTA [Suspect]
     Indication: LUNG ADENOCARCINOMA RECURRENT
     Dosage: 820 MG, OTHER
     Route: 042
     Dates: start: 20100323, end: 20100510
  2. AVASTIN [Concomitant]
     Indication: LUNG ADENOCARCINOMA RECURRENT
     Dosage: 950 MG, OTHER
     Route: 042
     Dates: start: 20100323, end: 20100510
  3. PARAPLATIN [Concomitant]
     Indication: LUNG ADENOCARCINOMA RECURRENT
     Dosage: 440 MG, OTHER
     Route: 042
     Dates: start: 20100323, end: 20100510
  4. PANVITAN [Concomitant]
     Dosage: 0.5 G, DAILY (1/D)
     Route: 048
     Dates: start: 20100315, end: 20100630
  5. METHYCOBAL [Concomitant]
     Dosage: 500 UG, OTHER
     Route: 030
     Dates: start: 20100315, end: 20100315
  6. GLIMICRON [Concomitant]
     Dosage: 40 MG, 2/D
     Route: 048
     Dates: start: 20100323
  7. BEZATOL [Concomitant]
     Dosage: 200 MEQ, 2/D
     Route: 048
     Dates: start: 20100323
  8. MUCODYNE [Concomitant]
     Dosage: 250 MEQ, 3/D
     Route: 048
     Dates: start: 20100323
  9. BIFUROXIN [Concomitant]
     Dosage: 2 D/F, 3/D
     Route: 048
     Dates: start: 20100323
  10. OPALMON [Concomitant]
     Dosage: 5 UG, 3/D
     Route: 048
     Dates: start: 20100323
  11. EPADEL-S [Concomitant]
     Dosage: 600 MG, 3/D
     Route: 048
     Dates: start: 20100323
  12. SALOBEL [Concomitant]
     Dosage: 100 MG, DAILY (1/D)
     Route: 048
     Dates: start: 20100323
  13. SPIRIVA [Concomitant]
     Dosage: 18 UG, DAILY (1/D)
     Route: 055
     Dates: start: 20100323
  14. TAKEPRON [Concomitant]
     Dosage: 30 MG, DAILY (1/D)
     Route: 048
     Dates: start: 20100323
  15. EVIPROSTAT                         /01150001/ [Concomitant]
     Dosage: 3 D/F, 3/D
     Route: 048
     Dates: start: 20100323
  16. SHAKUYAKUKANZOUTOU [Concomitant]
     Dosage: 2.5 G, DAILY (1/D)
     Route: 048
     Dates: start: 20100323
  17. CODEINE PHOSPHATE [Concomitant]
     Dosage: 20 MG, AS NEEDED
     Route: 048
     Dates: start: 20100323
  18. PROMAC /JPN/ [Concomitant]
     Dosage: 0.5 G, 2/D
     Route: 048
     Dates: start: 20100323
  19. ZOSYN [Concomitant]
     Indication: PNEUMONIA
     Dosage: 4.5 G, DAILY (1/D)
     Route: 065
     Dates: start: 20100607, end: 20100609

REACTIONS (2)
  - INTERSTITIAL LUNG DISEASE [None]
  - PLATELET COUNT DECREASED [None]
